FAERS Safety Report 24058779 (Version 2)
Quarter: 2024Q4

REPORT INFORMATION
  Report Type: Report from Study
  Country: DE (occurrence: DE)
  Receive Date: 20240708
  Receipt Date: 20241031
  Transmission Date: 20250114
  Serious: Yes (Other)
  Sender: NORDIC PHARMA
  Company Number: DE-SANDOZ-SDZ2024DE007719

PATIENT
  Sex: Female

DRUGS (12)
  1. METHOTREXATE [Suspect]
     Active Substance: METHOTREXATE
     Indication: Product used for unknown indication
     Route: 065
  2. ERELZI [Concomitant]
     Active Substance: ETANERCEPT-SZZS
     Indication: Product used for unknown indication
     Dosage: 50 MG, QW
     Route: 065
  3. METHOTREXATE [Suspect]
     Active Substance: METHOTREXATE
     Indication: Product used for unknown indication
     Route: 065
  4. AMITRIPTYLINE [Concomitant]
     Active Substance: AMITRIPTYLINE
  5. BISOPROLOL [Concomitant]
     Active Substance: BISOPROLOL\BISOPROLOL FUMARATE
  6. ENTOCORT [Concomitant]
     Active Substance: BUDESONIDE
  7. prednisone (LODOTRA) [Concomitant]
  8. ORENCIA [Concomitant]
     Active Substance: ABATACEPT
     Dates: start: 20210501, end: 20210701
  9. ROSUVASTATIN [Concomitant]
     Active Substance: ROSUVASTATIN
  10. TELMISARTAN [Concomitant]
     Active Substance: TELMISARTAN
  11. cholocalciferol (VIGANTOLETTEN) [Concomitant]
  12. ALENDRONIC ACID [Concomitant]
     Active Substance: ALENDRONIC ACID

REACTIONS (4)
  - Basal cell carcinoma [Recovered/Resolved]
  - Hepatic enzyme increased [Unknown]
  - COVID-19 [Recovered/Resolved]
  - Arthralgia [Unknown]

NARRATIVE: CASE EVENT DATE: 20230503
